FAERS Safety Report 9557256 (Version 1)
Quarter: 2013Q3

REPORT INFORMATION
  Report Type: Spontaneous
  Country: US (occurrence: None)
  Receive Date: 20130815
  Receipt Date: 20130815
  Transmission Date: 20140515
  Serious: Yes (Hospitalization, Other)
  Sender: FDA-Public Use
  Company Number: ADR-2013-00325

PATIENT
  Age: 50 Year
  Sex: Female

DRUGS (2)
  1. BACLOFEN INTRATHECAL [Suspect]
     Indication: PAIN
  2. FENTANYL INTRATHECAL 500 MCG/ML [Concomitant]

REACTIONS (4)
  - Implant site erythema [None]
  - Implant site pain [None]
  - Implant site swelling [None]
  - Implant site infection [None]
